FAERS Safety Report 10009938 (Version 1)
Quarter: 2014Q1

REPORT INFORMATION
  Report Type: Spontaneous
  Country: US (occurrence: US)
  Receive Date: 20140312
  Receipt Date: 20140312
  Transmission Date: 20141002
  Serious: No
  Sender: FDA-Public Use
  Company Number: US-INCYTE CORPORATION-2013IN000541

PATIENT
  Age: 82 Year
  Sex: Female

DRUGS (7)
  1. JAKAFI [Suspect]
     Indication: MYELOFIBROSIS
     Dosage: 5 MG, BID
     Route: 048
     Dates: start: 20130115
  2. LENALIDOMIDE [Concomitant]
  3. HYDREA [Concomitant]
  4. THALIDOMIDE [Concomitant]
  5. INTERFERON [Concomitant]
  6. ANAGRELIDE [Concomitant]
  7. IBUPROFEN [Concomitant]

REACTIONS (2)
  - Arthritis [Unknown]
  - Joint swelling [Unknown]
